FAERS Safety Report 12915038 (Version 1)
Quarter: 2016Q4

REPORT INFORMATION
  Report Type: Spontaneous
  Country: US (occurrence: US)
  Receive Date: 20161106
  Receipt Date: 20161106
  Transmission Date: 20170207
  Serious: No
  Sender: FDA-Public Use
  Company Number: US-RELYPSA-RLY2016002329

PATIENT
  Sex: Male

DRUGS (27)
  1. VELTASSA [Suspect]
     Active Substance: PATIROMER
     Indication: HYPERKALAEMIA
     Dosage: 8.4 G, QD
     Route: 048
  2. AMLODIPINE BESYLATE. [Concomitant]
     Active Substance: AMLODIPINE BESYLATE
  3. DEXILANT [Concomitant]
     Active Substance: DEXLANSOPRAZOLE
  4. HYDROCHLOROTHIAZIDE. [Concomitant]
     Active Substance: HYDROCHLOROTHIAZIDE
  5. TRAMADOL HCL [Concomitant]
     Active Substance: TRAMADOL HYDROCHLORIDE
  6. OXYCODONE AND ACETAMINOPHEN [Concomitant]
     Active Substance: ACETAMINOPHEN\OXYCODONE HYDROCHLORIDE
  7. PERCOCET [Concomitant]
     Active Substance: ACETAMINOPHEN\OXYCODONE HYDROCHLORIDE
  8. VITAMIN D [Concomitant]
     Active Substance: CHOLECALCIFEROL
  9. ZOLPIDEM TARTRATE. [Concomitant]
     Active Substance: ZOLPIDEM TARTRATE
  10. ASPIRIN. [Concomitant]
     Active Substance: ASPIRIN
  11. LEVEMIR [Concomitant]
     Active Substance: INSULIN DETEMIR
  12. VOLTAREN [Concomitant]
     Active Substance: DICLOFENAC SODIUM
  13. SENSIPAR [Concomitant]
     Active Substance: CINACALCET HYDROCHLORIDE
  14. CRESTOR [Concomitant]
     Active Substance: ROSUVASTATIN CALCIUM
  15. TAMSULOSIN HCL [Concomitant]
     Active Substance: TAMSULOSIN
  16. BYDUREON [Concomitant]
     Active Substance: EXENATIDE
  17. METOPROLOL SUCCINATE ER [Concomitant]
     Active Substance: METOPROLOL SUCCINATE
  18. AZITHROMYCIN ANHYDROUS. [Concomitant]
     Active Substance: AZITHROMYCIN ANHYDROUS
  19. CARVEDILOL. [Concomitant]
     Active Substance: CARVEDILOL
  20. RANEXA [Concomitant]
     Active Substance: RANOLAZINE
  21. AMMONIUM LACTATE. [Concomitant]
     Active Substance: AMMONIUM LACTATE
  22. SIMVASTATIN. [Concomitant]
     Active Substance: SIMVASTATIN
  23. OMEPRAZOLE. [Concomitant]
     Active Substance: OMEPRAZOLE
  24. MUCINEX ALLERGY [Concomitant]
     Active Substance: FEXOFENADINE HYDROCHLORIDE
  25. IBUPROFEN. [Concomitant]
     Active Substance: IBUPROFEN
  26. METOPROLOL TARTRATE. [Concomitant]
     Active Substance: METOPROLOL TARTRATE
  27. BISACODYL. [Concomitant]
     Active Substance: BISACODYL

REACTIONS (1)
  - Constipation [Unknown]
